FAERS Safety Report 5301003-5 (Version None)
Quarter: 2007Q2

REPORT INFORMATION
  Report Type: 
  Country: None (occurrence: None)
  Receive Date: 20070418
  Receipt Date: 20070202
  Transmission Date: 20071010
  Serious: No
  Sender: FDA-Public Use
  Company Number: US-AMGEN-US209536

PATIENT
  Sex: Male
  Weight: 71 kg

DRUGS (15)
  1. SENSIPAR [Suspect]
     Indication: HYPERPARATHYROIDISM SECONDARY
     Route: 065
     Dates: start: 20061006
  2. EPOGEN [Suspect]
     Indication: RENAL FAILURE CHRONIC
     Route: 042
     Dates: start: 20020101
  3. ANTIHYPERTENSIVE MEDICATION NOS [Concomitant]
     Route: 065
  4. VENOFER [Concomitant]
     Route: 065
  5. ZEMPLAR [Concomitant]
     Route: 065
  6. ACETAMINOPHEN [Concomitant]
     Route: 065
  7. TOPROL-XL [Concomitant]
     Route: 065
  8. RENAGEL [Concomitant]
     Route: 065
  9. NEPHRO-VITE [Concomitant]
     Route: 065
  10. LIPITOR [Concomitant]
     Route: 065
  11. SALINE MIXTURE [Concomitant]
     Route: 065
  12. DOCUSATE [Concomitant]
     Route: 065
  13. CARDIZEM CD [Concomitant]
     Route: 065
  14. BENADRYL [Concomitant]
     Route: 065
  15. ASPIRIN [Concomitant]
     Route: 065

REACTIONS (4)
  - HAEMOGLOBIN DECREASED [None]
  - HYPERTENSION [None]
  - PRURITUS [None]
  - SERUM FERRITIN INCREASED [None]
